FAERS Safety Report 21615476 (Version 1)
Quarter: 2022Q4

REPORT INFORMATION
  Report Type: Spontaneous
  Country: US (occurrence: None)
  Receive Date: 20221118
  Receipt Date: 20221118
  Transmission Date: 20230113
  Serious: No
  Sender: FDA-Public Use
  Company Number: 2022A380627

PATIENT
  Sex: Female
  Weight: 94.3 kg

DRUGS (1)
  1. SYMBICORT [Suspect]
     Active Substance: BUDESONIDE\FORMOTEROL FUMARATE DIHYDRATE
     Indication: Asthma
     Dosage: TAKE AS 2 INHALATIONS 2 TIMES A DAY, IN ADDITION, TO INHALE 1 PUFF EVERY 4 HOURS
     Route: 055

REACTIONS (6)
  - Swollen tongue [Unknown]
  - Underdose [Unknown]
  - Wrong technique in product usage process [Unknown]
  - Device use issue [Unknown]
  - Device malfunction [Unknown]
  - Product dose omission issue [Unknown]
